FAERS Safety Report 7170868-7 (Version None)
Quarter: 2010Q4

REPORT INFORMATION
  Report Type: 
  Country: None (occurrence: None)
  Receive Date: 20101217
  Receipt Date: 20100916
  Transmission Date: 20110411
  Serious: Yes (Other)
  Sender: FDA-Public Use
  Company Number: FR-CELGENEUS-056-21880-10121109

PATIENT

DRUGS (1)
  1. REVLIMID [Suspect]
     Route: 048
     Dates: start: 20080308, end: 20090115

REACTIONS (1)
  - LUNG DISORDER [None]
